FAERS Safety Report 24555260 (Version 2)
Quarter: 2024Q4

REPORT INFORMATION
  Report Type: Spontaneous
  Country: US (occurrence: US)
  Receive Date: 20241028
  Receipt Date: 20241112
  Transmission Date: 20250114
  Serious: No
  Sender: MYLAN
  Company Number: US-MYLANLABS-2024M1094658

PATIENT
  Sex: Female

DRUGS (5)
  1. ESTRADIOL TRANSDERMAL SYSTEM [Suspect]
     Active Substance: ESTRADIOL
     Indication: Menopause
     Dosage: 0.05 MILLIGRAM, QD (PER DAY, PATCH TWICE WEEKLY)
     Route: 062
     Dates: end: 20241005
  2. ESTRADIOL [Concomitant]
     Active Substance: ESTRADIOL
     Dosage: 10 MICROGRAM, BIWEEKLY (TWICE A WEEK)
     Route: 065
  3. PROGESTERONE [Concomitant]
     Active Substance: PROGESTERONE
     Indication: Menopause
     Dosage: UNK, QD (DAILY)
     Route: 065
  4. NURTEC ODT [Concomitant]
     Active Substance: RIMEGEPANT SULFATE
     Indication: Migraine
     Dosage: UNK, QOD (EVERY OTHER DAY)
     Route: 065
  5. BOTOX [Concomitant]
     Active Substance: ONABOTULINUMTOXINA
     Indication: Migraine
     Dosage: UNK, Q3MONTHS (EVERY 3 MONTHS)
     Route: 065

REACTIONS (1)
  - Drug ineffective [Not Recovered/Not Resolved]

NARRATIVE: CASE EVENT DATE: 20240101
